FAERS Safety Report 12253547 (Version 2)
Quarter: 2016Q2

REPORT INFORMATION
  Report Type: Spontaneous
  Country: US (occurrence: US)
  Receive Date: 20160411
  Receipt Date: 20160418
  Transmission Date: 20160815
  Serious: No
  Sender: FDA-Public Use
  Company Number: US-ACTAVIS-2016-00836

PATIENT
  Sex: Male
  Weight: 95 kg

DRUGS (1)
  1. OXYCODONE-ACETAMINOPHEN (AELLC) [Suspect]
     Active Substance: ACETAMINOPHEN\OXYCODONE HYDROCHLORIDE
     Indication: PAIN
     Dosage: 1 TABLET AS NEEDED EVERY 8 HOURS
     Route: 065

REACTIONS (1)
  - Feeling abnormal [Unknown]
